FAERS Safety Report 8516252-2 (Version None)
Quarter: 2012Q3

REPORT INFORMATION
  Report Type: 
  Country: None (occurrence: None)
  Receive Date: 20120717
  Receipt Date: 20120712
  Transmission Date: 20120928
  Serious: No
  Sender: FDA-Public Use
  Company Number: US-PFIZER INC-2012169675

PATIENT
  Sex: Female

DRUGS (5)
  1. SOMAVERT [Suspect]
     Indication: ABNORMAL BEHAVIOUR
     Dosage: 10 MG, 1X/DAY
     Dates: start: 20120601
  2. CRESTOR [Concomitant]
     Dosage: 10 MG, UNK
  3. SOMAVERT [Suspect]
     Indication: PITUITARY TUMOUR
  4. SOMAVERT [Suspect]
     Indication: GIGANTISM
  5. SOMAVERT [Suspect]
     Indication: ACROMEGALY

REACTIONS (1)
  - FATIGUE [None]
